FAERS Safety Report 9320864 (Version 1)
Quarter: 2013Q2

REPORT INFORMATION
  Report Type: Report from Study
  Country: BR (occurrence: BR)
  Receive Date: 20130531
  Receipt Date: 20130531
  Transmission Date: 20140414
  Serious: Yes (Death, Hospitalization, Other)
  Sender: FDA-Public Use
  Company Number: PHHY2013BR054248

PATIENT
  Sex: Female
  Weight: 27 kg

DRUGS (1)
  1. FORASEQ [Suspect]
     Indication: NASOPHARYNGITIS
     Dosage: 1 DF, BID

REACTIONS (11)
  - Hernia obstructive [Fatal]
  - Abdominal strangulated hernia [Fatal]
  - Vomiting [Fatal]
  - Nausea [Fatal]
  - Abdominal distension [Fatal]
  - Intestinal obstruction [Fatal]
  - Cardio-respiratory arrest [Fatal]
  - Septic shock [Fatal]
  - Agonal death struggle [Unknown]
  - Feeling abnormal [Unknown]
  - Fatigue [Unknown]
